FAERS Safety Report 15433108 (Version 1)
Quarter: 2018Q3

REPORT INFORMATION
  Report Type: Report from Study
  Country: None (occurrence: IL)
  Receive Date: 20180927
  Receipt Date: 20180927
  Transmission Date: 20181010
  Serious: Yes (Hospitalization)
  Sender: FDA-Public Use
  Company Number: IL-ABBVIE-18S-082-2488348-00

PATIENT
  Age: 78 Year
  Sex: Female

DRUGS (1)
  1. DUODOPA [Suspect]
     Active Substance: CARBIDOPA\LEVODOPA
     Indication: PRODUCT USED FOR UNKNOWN INDICATION
     Dosage: MORNING DOSE 8ML,?CONTINUOUS DOSE 2.6ML/HOUR,?EXTRA DOSE 1ML
     Route: 050
     Dates: start: 20180913, end: 201809

REACTIONS (5)
  - Abdominal infection [Unknown]
  - Haemoglobin decreased [Unknown]
  - Stoma site pain [Not Recovered/Not Resolved]
  - Intestinal perforation [Unknown]
  - Haemorrhage [Not Recovered/Not Resolved]

NARRATIVE: CASE EVENT DATE: 201809
